FAERS Safety Report 8711094 (Version 2)
Quarter: 2013Q2

REPORT INFORMATION
  Report Type: Spontaneous
  Country: None (occurrence: None)
  Receive Date: 20120723
  Receipt Date: 20130422
  Transmission Date: 20140414
  Serious: Yes (Other)
  Sender: FDA-Public Use
  Company Number: EUS-2012-00473

PATIENT
  Sex: Female

DRUGS (2)
  1. ASPARAGINASE [Suspect]
     Indication: ACUTE LYMPHOCYTIC LEUKAEMIA
  2. GLUCOCORTICOSTEROIDS (GLUCOCORTICOSTEROIDS) [Concomitant]

REACTIONS (3)
  - HYPERTRIGLYCERIDAEMIA [None]
  - HYPERCHOLESTEROLAEMIA [None]
  - LOW DENSITY LIPOPROTEIN INCREASED [None]
